FAERS Safety Report 9927411 (Version 1)
Quarter: 2014Q1

REPORT INFORMATION
  Report Type: Report from Study
  Country: MX (occurrence: MX)
  Receive Date: 20140226
  Receipt Date: 20140226
  Transmission Date: 20141002
  Serious: Yes (Death, Other)
  Sender: FDA-Public Use
  Company Number: PHHY2014MX023167

PATIENT
  Age: 56 Year
  Sex: Female

DRUGS (1)
  1. DIOVAN [Suspect]
     Indication: HYPERTENSION
     Dosage: 320 MG, DAILY
     Route: 048
     Dates: start: 20131121, end: 201401

REACTIONS (3)
  - Respiratory arrest [Fatal]
  - Neoplasm malignant [Fatal]
  - Hypotension [Fatal]
